FAERS Safety Report 5759577-6 (Version None)
Quarter: 2008Q2

REPORT INFORMATION
  Report Type: 
  Country: None (occurrence: None)
  Receive Date: 20080605
  Receipt Date: 20080528
  Transmission Date: 20081010
  Serious: Yes (Other)
  Sender: FDA-Public Use
  Company Number: DK-ASTRAZENECA-2008SE02738

PATIENT
  Sex: Female

DRUGS (10)
  1. SEROQUEL [Suspect]
     Indication: MANIA
     Route: 048
  2. SEROQUEL [Suspect]
     Dosage: 50+50 MG AND 25-50 MG. MAXIMUM 100 MG.
     Route: 048
  3. PANTOPRAZOLE SODIUM [Concomitant]
     Indication: GASTRIC ULCER
  4. ELTROXIN [Concomitant]
     Indication: HYPOMETABOLISM
  5. ASASANTIN RETARD [Concomitant]
     Indication: HYPERTENSION
     Route: 048
  6. IRBESARTAN [Concomitant]
     Indication: HYPERTENSION
     Route: 048
  7. METFORMIN HCL [Concomitant]
     Indication: DIABETES MELLITUS
     Route: 048
  8. LITHIUM CARBONATE [Concomitant]
     Indication: MANIA
     Route: 048
  9. MIXTARD INJECTION 30/50 [Concomitant]
     Indication: HYPERGLYCAEMIA
  10. MIXTARD INJECTION 30/70 [Concomitant]
     Indication: HYPERGLYCAEMIA

REACTIONS (1)
  - SKIN REACTION [None]
